FAERS Safety Report 26021166 (Version 1)
Quarter: 2025Q4

REPORT INFORMATION
  Report Type: Spontaneous
  Country: US (occurrence: None)
  Receive Date: 20251109
  Receipt Date: 20251109
  Transmission Date: 20260118
  Serious: Yes (Hospitalization)
  Sender: FDA-CTU
  Company Number: None

PATIENT
  Age: 27 Month
  Sex: Male

DRUGS (1)
  1. CARGLUMIC ACID [Suspect]
     Active Substance: CARGLUMIC ACID
     Indication: Urea cycle disorder
     Dosage: 600 MG TWICE A DAY GASTRONOMY TUBE
     Route: 050

REACTIONS (1)
  - Vomiting [None]

NARRATIVE: CASE EVENT DATE: 20250912
